FAERS Safety Report 15823472 (Version 1)
Quarter: 2019Q1

REPORT INFORMATION
  Report Type: Spontaneous
  Country: GB (occurrence: GB)
  Receive Date: 20190114
  Receipt Date: 20190114
  Transmission Date: 20190417
  Serious: Yes (Other)
  Sender: FDA-Public Use
  Company Number: GB-LINDE-GB-LHC-2018251

PATIENT
  Age: 59 Year
  Sex: Female

DRUGS (2)
  1. CARBON DIOXIDE (GENERIC) [Suspect]
     Active Substance: CARBON DIOXIDE
     Indication: LAPAROSCOPIC SURGERY
     Route: 055
  2. OXYGEN. [Concomitant]
     Active Substance: OXYGEN
     Indication: LAPAROSCOPIC SURGERY
     Route: 055

REACTIONS (5)
  - Tachycardia [Recovered/Resolved]
  - Subcutaneous emphysema [Recovered/Resolved]
  - Hypotension [Recovered/Resolved]
  - End-tidal CO2 increased [Recovered/Resolved]
  - Duodenal perforation [Recovered/Resolved]
